FAERS Safety Report 19038458 (Version 1)
Quarter: 2021Q1

REPORT INFORMATION
  Report Type: Report from Study
  Country: CA (occurrence: CA)
  Receive Date: 20210322
  Receipt Date: 20210322
  Transmission Date: 20210420
  Serious: Yes (Other)
  Sender: FDA-Public Use
  Company Number: CA-TAKEDA-2021TUS017681

PATIENT
  Age: 66 Year
  Sex: Female

DRUGS (12)
  1. XELJANZ [Concomitant]
     Active Substance: TOFACITINIB CITRATE
  2. LEFLUNOMIDE. [Concomitant]
     Active Substance: LEFLUNOMIDE
     Dosage: 20 MILLIGRAM, QD
  3. CANDESARTAN. [Concomitant]
     Active Substance: CANDESARTAN
  4. PREDNISONE. [Concomitant]
     Active Substance: PREDNISONE
  5. PILOCARPINE. [Concomitant]
     Active Substance: PILOCARPINE
  6. GAMMAGARD LIQUID [Suspect]
     Active Substance: HUMAN IMMUNOGLOBULIN G
     Indication: PRIMARY IMMUNODEFICIENCY SYNDROME
     Dosage: 12 GRAM, 1/WEEK
     Route: 065
     Dates: start: 20190515
  7. ROSUVASTATIN. [Concomitant]
     Active Substance: ROSUVASTATIN
  8. MOMETASONE [Concomitant]
     Active Substance: MOMETASONE
  9. IVIGLOB EX [Concomitant]
     Active Substance: HUMAN IMMUNOGLOBULIN G
  10. DULOXETINE [DULOXETINE HYDROCHLORIDE] [Concomitant]
     Active Substance: DULOXETINE HYDROCHLORIDE
  11. DENOSUMAB [Concomitant]
     Active Substance: DENOSUMAB
  12. SALBUTAMOL [Concomitant]
     Active Substance: ALBUTEROL

REACTIONS (3)
  - Surgery [Unknown]
  - Pain [Unknown]
  - Contusion [Unknown]
